FAERS Safety Report 9492332 (Version 2)
Quarter: 2013Q3

REPORT INFORMATION
  Report Type: Spontaneous
  Country: FR (occurrence: FR)
  Receive Date: 20130830
  Receipt Date: 20130910
  Transmission Date: 20140515
  Serious: Yes (Other)
  Sender: FDA-Public Use
  Company Number: FR-WATSON-2013-15094

PATIENT
  Age: 32 Year
  Sex: Male

DRUGS (1)
  1. SERTRALINE (UNKNOWN) (SERTRALINE) [Suspect]
     Indication: PRODUCT USED FOR UNKNOWN INDICATION
     Dosage: 25 MG, DAILY
     Route: 048
     Dates: start: 20100810, end: 20100827

REACTIONS (1)
  - Tonic clonic movements [Unknown]
